FAERS Safety Report 8989246 (Version 1)
Quarter: 2012Q4

REPORT INFORMATION
  Report Type: 
  Country: IN (occurrence: None)
  Receive Date: 20121219
  Receipt Date: 20121219
  Transmission Date: 20130627
  Serious: Yes (Other)
  Sender: FDA-Public Use
  Company Number: IN-1195763

PATIENT
  Age: 9 Year
  Sex: Female

DRUGS (6)
  1. PREDNISOLONE ACETATE [Suspect]
     Indication: POSTOPERATIVE CARE
     Dosage: 6x/day OD
     Route: 047
  2. PREDNISOLONE ACETATE [Suspect]
     Indication: POSTOPERATIVE CARE
     Dosage: tapered over the next 8 weeks Ophthalmic
     Route: 047
  3. PREDNISOLONE ACETATE [Suspect]
     Indication: POSTOPERATIVE CARE
     Dosage: 6x/day OD
     Route: 047
  4. PREDNISOLONE ACETATE [Suspect]
     Indication: POSTOPERATIVE CARE
     Route: 047
  5. CILOXAN [Concomitant]
  6. ARTIFICIAL TEARS [Concomitant]

REACTIONS (10)
  - Corneal infiltrates [None]
  - Eye pain [None]
  - Ocular hyperaemia [None]
  - Streptococcus test positive [None]
  - Ulcerative keratitis [None]
  - Limbal stem cell deficiency [None]
  - Disease recurrence [None]
  - Detached Descemet^s membrane [None]
  - Corneal transplant [None]
  - Cataract subcapsular [None]
